FAERS Safety Report 14009686 (Version 3)
Quarter: 2017Q4

REPORT INFORMATION
  Report Type: Spontaneous
  Country: JP (occurrence: JP)
  Receive Date: 20170925
  Receipt Date: 20171103
  Transmission Date: 20180321
  Serious: Yes (Disabling, Other)
  Sender: FDA-Public Use
  Company Number: JP-ROCHE-1997406

PATIENT
  Age: 96 Year
  Sex: Female
  Weight: 41 kg

DRUGS (11)
  1. EDIROL [Concomitant]
     Active Substance: ELDECALCITOL
  2. BONVIVA [Suspect]
     Active Substance: IBANDRONATE SODIUM
     Dosage: REGIMEN 2; 4 DOSES ENDOCERVICAL
     Route: 065
     Dates: start: 20150122, end: 20150525
  3. NICORANDIL [Concomitant]
     Active Substance: NICORANDIL
  4. SELBEX [Concomitant]
     Active Substance: TEPRENONE
  5. BONVIVA [Suspect]
     Active Substance: IBANDRONATE SODIUM
     Dosage: REGIMEN 1
     Route: 042
     Dates: start: 20140411, end: 20140501
  6. PRALIA [Suspect]
     Active Substance: DENOSUMAB
     Indication: OSTEOPOROSIS
     Route: 058
     Dates: start: 20170718, end: 20170718
  7. MAGNESIUM HYDROXIDE. [Concomitant]
     Active Substance: MAGNESIUM HYDROXIDE
  8. SHIGMABITAN [Concomitant]
  9. BONVIVA [Suspect]
     Active Substance: IBANDRONATE SODIUM
     Indication: PRODUCT USED FOR UNKNOWN INDICATION
     Dosage: LAST DOSE ON 01/JUN/2017?REGIMEN 3
     Route: 042
     Dates: start: 20160316, end: 20170601
  10. NIVADIL [Concomitant]
     Active Substance: NILVADIPINE
  11. FRANDOL [Concomitant]
     Active Substance: ISOSORBIDE DINITRATE

REACTIONS (5)
  - Deafness [Recovering/Resolving]
  - Tinnitus [Not Recovered/Not Resolved]
  - Eye discharge [Recovering/Resolving]
  - Pain in extremity [Recovered/Resolved]
  - Lacrimation increased [Recovering/Resolving]

NARRATIVE: CASE EVENT DATE: 201707
